FAERS Safety Report 12341419 (Version 2)
Quarter: 2016Q2

REPORT INFORMATION
  Report Type: Spontaneous
  Country: GB (occurrence: GB)
  Receive Date: 20160506
  Receipt Date: 20160512
  Transmission Date: 20160815
  Serious: Yes (Other)
  Sender: FDA-Public Use
  Company Number: GB-PFIZER INC-2016235707

PATIENT
  Age: 61 Year
  Sex: Male
  Weight: 76 kg

DRUGS (5)
  1. ASPIRIN. [Concomitant]
     Active Substance: ASPIRIN
     Dosage: 75 MG, UNK
  2. DESLORATADINE. [Concomitant]
     Active Substance: DESLORATADINE
     Dosage: 5 MG, UNK
  3. ATORVASTATIN [Suspect]
     Active Substance: ATORVASTATIN
     Indication: BLOOD CHOLESTEROL INCREASED
     Dosage: 80 MG, UNK
     Route: 048
     Dates: start: 20160124, end: 20160322
  4. BISOPROLOL [Concomitant]
     Active Substance: BISOPROLOL
     Dosage: 2.5 MG, UNK
  5. CLOPIDOGREL [Concomitant]
     Active Substance: CLOPIDOGREL BISULFATE
     Dosage: 75 MG, UNK

REACTIONS (6)
  - Contusion [Recovering/Resolving]
  - Abnormal weight gain [Recovering/Resolving]
  - Abdominal distension [Recovering/Resolving]
  - Mouth ulceration [Recovering/Resolving]
  - Rash [Recovering/Resolving]
  - Epistaxis [Recovering/Resolving]

NARRATIVE: CASE EVENT DATE: 20160315
